FAERS Safety Report 21748682 (Version 2)
Quarter: 2023Q1

REPORT INFORMATION
  Report Type: Report from Study
  Country: US (occurrence: US)
  Receive Date: 20221219
  Receipt Date: 20230112
  Transmission Date: 20230417
  Serious: Yes (Other)
  Sender: FDA-Public Use
  Company Number: US-TAKEDA-2022TUS098701

PATIENT
  Age: 52 Year
  Sex: Female

DRUGS (8)
  1. TEDUGLUTIDE [Suspect]
     Active Substance: TEDUGLUTIDE
     Indication: Short-bowel syndrome
     Dosage: 1.1 MILLIGRAM, 4/WEEK
     Route: 042
     Dates: start: 20181204, end: 20220415
  2. TEDUGLUTIDE [Suspect]
     Active Substance: TEDUGLUTIDE
     Indication: Short-bowel syndrome
     Dosage: 1.1 MILLIGRAM, 4/WEEK
     Route: 042
     Dates: start: 20181204, end: 20220415
  3. TEDUGLUTIDE [Suspect]
     Active Substance: TEDUGLUTIDE
     Indication: Short-bowel syndrome
     Dosage: 1.1 MILLIGRAM, 4/WEEK
     Route: 042
     Dates: start: 20181204, end: 20220415
  4. TEDUGLUTIDE [Suspect]
     Active Substance: TEDUGLUTIDE
     Indication: Short-bowel syndrome
     Dosage: 1.1 MILLIGRAM, 4/WEEK
     Route: 042
     Dates: start: 20181204, end: 20220415
  5. ESZOPICLONE [Concomitant]
     Active Substance: ESZOPICLONE
     Indication: Insomnia
     Dosage: 3 MILLIGRAM, QD
     Route: 048
     Dates: start: 20220805, end: 20220904
  6. VITAMIN D2 [Concomitant]
     Active Substance: ERGOCALCIFEROL
     Indication: Vitamin D deficiency
     Dosage: 50 INTERNATIONAL UNIT, BID
     Route: 048
     Dates: start: 20160425
  7. URSODIOL [Concomitant]
     Active Substance: URSODIOL
     Indication: Gastrointestinal bacterial overgrowth
     Dosage: 300 MILLIGRAM, TID
     Route: 048
     Dates: start: 20130906
  8. SUCRALFATE [Concomitant]
     Active Substance: SUCRALFATE
     Indication: Dyspepsia
     Dosage: 1 MILLIGRAM, QID
     Route: 048
     Dates: start: 20071212

REACTIONS (1)
  - Vascular device infection [Recovered/Resolved]

NARRATIVE: CASE EVENT DATE: 20220401
